FAERS Safety Report 24179318 (Version 1)
Quarter: 2024Q3

REPORT INFORMATION
  Report Type: Spontaneous
  Country: CN (occurrence: CN)
  Receive Date: 20240806
  Receipt Date: 20240806
  Transmission Date: 20241017
  Serious: Yes (Other)
  Sender: BAYER
  Company Number: CN-BAYER-2024A110414

PATIENT
  Age: 70 Year
  Sex: Female
  Weight: 50 kg

DRUGS (2)
  1. STIVARGA [Suspect]
     Active Substance: REGORAFENIB MONOHYDRATE
     Indication: Targeted cancer therapy
     Dosage: 120 MG, QD
     Route: 048
     Dates: start: 20240607, end: 20240628
  2. STIVARGA [Suspect]
     Active Substance: REGORAFENIB MONOHYDRATE
     Indication: Colon cancer

REACTIONS (3)
  - Myelosuppression [Recovering/Resolving]
  - White blood cell count decreased [Recovering/Resolving]
  - Off label use [None]

NARRATIVE: CASE EVENT DATE: 20240607
